FAERS Safety Report 5339068-7 (Version None)
Quarter: 2007Q2

REPORT INFORMATION
  Report Type: 
  Country: None (occurrence: None)
  Receive Date: 20070405
  Receipt Date: 20061120
  Transmission Date: 20071010
  Serious: No
  Sender: FDA-Public Use
  Company Number: US200611003843

PATIENT
  Age: 27 Year
  Sex: Male

DRUGS (7)
  1. CYMBALTA [Suspect]
     Indication: BIPOLAR I DISORDER
     Dosage: ORAL
     Route: 048
     Dates: start: 20060101
  2. PHENERGAN [Concomitant]
  3. VICODIN [Concomitant]
  4. TRAMADOL HCL [Concomitant]
  5. METHOCARBAMOL [Concomitant]
  6. CLONAZEPAM [Concomitant]
  7. ACETAMINOPHEN W/HYDROCODONE (HYDROCODONE PARACETAMOL) [Concomitant]

REACTIONS (1)
  - AMPHETAMINES POSITIVE [None]
